FAERS Safety Report 10782018 (Version 1)
Quarter: 2015Q1

REPORT INFORMATION
  Report Type: Spontaneous
  Country: US (occurrence: None)
  Receive Date: 20150209
  Receipt Date: 20150209
  Transmission Date: 20150721
  Serious: Yes (Hospitalization)
  Sender: FDA-Public Use
  Company Number: None

PATIENT
  Age: 55 Year
  Sex: Female

DRUGS (7)
  1. IFN-BETA 1A [Concomitant]
  2. LORAZEPAM. [Concomitant]
     Active Substance: LORAZEPAM
  3. OXYBUTYNIN [Concomitant]
     Active Substance: OXYBUTYNIN
  4. AMPYRA [Suspect]
     Active Substance: DALFAMPRIDINE
     Indication: MULTIPLE SCLEROSIS
     Route: 048
     Dates: start: 201201
  5. AMLODIPINE [Concomitant]
     Active Substance: AMLODIPINE BESYLATE
  6. QUETIAPINE [Concomitant]
     Active Substance: QUETIAPINE
  7. VALPROATE [Concomitant]
     Active Substance: VALPROATE SODIUM

REACTIONS (2)
  - Urinary tract infection [None]
  - Seizure [None]

NARRATIVE: CASE EVENT DATE: 20140813
